FAERS Safety Report 11762848 (Version 1)
Quarter: 2015Q4

REPORT INFORMATION
  Report Type: Spontaneous
  Country: US (occurrence: US)
  Receive Date: 20151120
  Receipt Date: 20151120
  Transmission Date: 20160304
  Serious: No
  Sender: FDA-Public Use
  Company Number: US-ELI_LILLY_AND_COMPANY-US201301004682

PATIENT
  Age: 66 Year
  Sex: Female

DRUGS (1)
  1. FORTEO [Suspect]
     Active Substance: TERIPARATIDE
     Indication: OSTEOPOROSIS
     Dosage: 20 UG, QD
     Dates: start: 20130110

REACTIONS (12)
  - Fatigue [Unknown]
  - Injection site haemorrhage [Recovered/Resolved]
  - Anxiety [Unknown]
  - Flatulence [Unknown]
  - Nervousness [Unknown]
  - Fear [Unknown]
  - Abdominal pain upper [Unknown]
  - Erythema [Unknown]
  - Injection site bruising [Unknown]
  - Palpitations [Unknown]
  - Headache [Unknown]
  - Contusion [Unknown]

NARRATIVE: CASE EVENT DATE: 201301
